FAERS Safety Report 16753918 (Version 2)
Quarter: 2019Q3

REPORT INFORMATION
  Report Type: Spontaneous
  Country: US (occurrence: US)
  Receive Date: 20190829
  Receipt Date: 20190926
  Transmission Date: 20191005
  Serious: No
  Sender: FDA-Public Use
  Company Number: US-DRREDDYS-USA/USA/19/0113692

PATIENT
  Age: 33 Year
  Sex: Male
  Weight: 99 kg

DRUGS (3)
  1. HABITROL [Suspect]
     Active Substance: NICOTINE
     Route: 062
  2. HABITROL [Suspect]
     Active Substance: NICOTINE
     Indication: TOBACCO USER
     Route: 062
     Dates: start: 20190707, end: 20190714
  3. HABITROL [Suspect]
     Active Substance: NICOTINE
     Route: 062

REACTIONS (6)
  - Heart rate decreased [Unknown]
  - Hyperhidrosis [Unknown]
  - Application site pruritus [Recovered/Resolved]
  - Blood pressure increased [Recovered/Resolved]
  - Application site rash [Recovered/Resolved]
  - Treatment noncompliance [Recovered/Resolved]

NARRATIVE: CASE EVENT DATE: 20190714
